FAERS Safety Report 9495758 (Version 2)
Quarter: 2013Q3

REPORT INFORMATION
  Report Type: Spontaneous
  Country: US (occurrence: US)
  Receive Date: 20130903
  Receipt Date: 20130925
  Transmission Date: 20140515
  Serious: No
  Sender: FDA-Public Use
  Company Number: US-009507513-1309USA000594

PATIENT
  Sex: Female

DRUGS (4)
  1. MIRALAX [Suspect]
     Indication: CONSTIPATION
     Dosage: 17 G, QPM
     Route: 048
     Dates: start: 2012
  2. MIRALAX [Suspect]
     Indication: MEDICAL OBSERVATION
  3. MIRALAX [Suspect]
     Indication: FAECES HARD
  4. SYNTHROID [Concomitant]
     Indication: THYROIDECTOMY
     Dosage: UNK, UNKNOWN

REACTIONS (4)
  - Weight decreased [Recovered/Resolved]
  - Incorrect drug administration duration [Unknown]
  - Drug effect decreased [Unknown]
  - Circumstance or information capable of leading to medication error [Unknown]
